FAERS Safety Report 6235960-X (Version None)
Quarter: 2009Q2

REPORT INFORMATION
  Report Type: 
  Country: None (occurrence: None)
  Receive Date: 20090619
  Receipt Date: 20090616
  Transmission Date: 20091009
  Serious: Yes (Death, Other)
  Sender: FDA-Public Use
  Company Number: PHEH2009US05814

PATIENT
  Age: 48 Year
  Sex: Female

DRUGS (2)
  1. EXJADE [Suspect]
     Indication: SICKLE CELL ANAEMIA
     Dosage: 1000 MG, QD
     Route: 048
     Dates: end: 20080601
  2. EXJADE [Suspect]
     Indication: HAEMOCHROMATOSIS

REACTIONS (4)
  - CARDIAC ARREST [None]
  - OSTEOMYELITIS [None]
  - PRURITUS [None]
  - RASH [None]
